FAERS Safety Report 17741203 (Version 1)
Quarter: 2020Q2

REPORT INFORMATION
  Report Type: Report from Study
  Country: GB (occurrence: GB)
  Receive Date: 20200504
  Receipt Date: 20200504
  Transmission Date: 20200714
  Serious: Yes (Life-Threatening, Other)
  Sender: FDA-Public Use
  Company Number: NVSC2020GB093980

PATIENT
  Sex: Female

DRUGS (1)
  1. COSENTYX [Suspect]
     Active Substance: SECUKINUMAB
     Indication: PSORIATIC ARTHROPATHY
     Dosage: 300 MG, QMO
     Route: 058
     Dates: start: 20190314

REACTIONS (9)
  - Feeling abnormal [Recovering/Resolving]
  - Coronavirus infection [Recovering/Resolving]
  - Chest discomfort [Unknown]
  - Pyrexia [Unknown]
  - Decreased appetite [Unknown]
  - Body temperature [Unknown]
  - Fatigue [Unknown]
  - Oropharyngeal pain [Unknown]
  - Diarrhoea [Unknown]
